FAERS Safety Report 5966083-2 (Version None)
Quarter: 2008Q4

REPORT INFORMATION
  Report Type: 
  Country: None (occurrence: None)
  Receive Date: 20081119
  Receipt Date: 20080807
  Transmission Date: 20090506
  Serious: No
  Sender: FDA-Public Use
  Company Number: WAES 0808USA01296

PATIENT
  Age: 53 Year
  Sex: Male

DRUGS (7)
  1. JANUVIA [Suspect]
     Indication: TYPE 2 DIABETES MELLITUS
     Dosage: 100 MG DAILY PO
     Route: 048
     Dates: start: 20080804
  2. ACTOS [Concomitant]
  3. COLACE [Concomitant]
  4. PRILOSEC [Concomitant]
  5. FIBER (UNSPECIFIED) [Concomitant]
  6. METHADONE HCL [Concomitant]
  7. VITAMINS (UNSPECIFIED) [Concomitant]

REACTIONS (1)
  - HEADACHE [None]
